FAERS Safety Report 15537436 (Version 2)
Quarter: 2018Q4

REPORT INFORMATION
  Report Type: Spontaneous
  Country: IT (occurrence: IT)
  Receive Date: 20181022
  Receipt Date: 20181107
  Transmission Date: 20190205
  Serious: Yes (Other)
  Sender: FDA-Public Use
  Company Number: IT-PFIZER INC-2018424617

PATIENT
  Age: 51 Year
  Sex: Female

DRUGS (14)
  1. MYCOSTATIN [Concomitant]
     Active Substance: NYSTATIN
  2. LOPERAMIDE [Concomitant]
     Active Substance: LOPERAMIDE
  3. LENTO-KALIUM [Concomitant]
     Active Substance: POTASSIUM CHLORIDE
  4. METHOTREXATE TEVA [METHOTREXATE] [Concomitant]
  5. FLEBOCORTID RICHTER [Concomitant]
  6. ENANTONE [LEUPRORELIN ACETATE] [Concomitant]
  7. PARACETAMOL [Concomitant]
     Active Substance: ACETAMINOPHEN
  8. LANSOPRAZOLE. [Concomitant]
     Active Substance: LANSOPRAZOLE
  9. MINIAS [Concomitant]
     Active Substance: LORMETAZEPAM
  10. DEXAMETHASONE. [Concomitant]
     Active Substance: DEXAMETHASONE
  11. FASLODEX [Concomitant]
     Active Substance: FULVESTRANT
  12. LOBIDIUR [Concomitant]
     Active Substance: HYDROCHLOROTHIAZIDE\NEBIVOLOL HYDROCHLORIDE
  13. PLASIL [METOCLOPRAMIDE] [Concomitant]
  14. IBRANCE [Suspect]
     Active Substance: PALBOCICLIB
     Indication: BREAST CANCER
     Dosage: 125 MG, 1X/DAY
     Route: 048
     Dates: start: 20171114, end: 20180110

REACTIONS (3)
  - Diarrhoea [Unknown]
  - Thrombocytopenia [Unknown]
  - Hypertransaminasaemia [Unknown]

NARRATIVE: CASE EVENT DATE: 20171129
